FAERS Safety Report 10433748 (Version 1)
Quarter: 2014Q3

REPORT INFORMATION
  Report Type: Report from Study
  Country: AU (occurrence: AU)
  Receive Date: 20140905
  Receipt Date: 20140905
  Transmission Date: 20150326
  Serious: Yes (Other)
  Sender: FDA-Public Use
  Company Number: AU-SA-2014SA119421

PATIENT
  Sex: Female

DRUGS (2)
  1. LANTUS [Suspect]
     Active Substance: INSULIN GLARGINE
     Indication: PRODUCT USED FOR UNKNOWN INDICATION
     Route: 065
     Dates: start: 20040901
  2. NOVORAPID [Concomitant]
     Active Substance: INSULIN ASPART

REACTIONS (4)
  - Pneumonia [Recovering/Resolving]
  - Malaise [Recovering/Resolving]
  - Upper respiratory tract infection [Recovering/Resolving]
  - Seasonal allergy [Recovering/Resolving]
